FAERS Safety Report 6727196-0 (Version None)
Quarter: 2010Q2

REPORT INFORMATION
  Report Type: 
  Country: None (occurrence: None)
  Receive Date: 20100517
  Receipt Date: 20100510
  Transmission Date: 20101027
  Serious: Yes (Hospitalization)
  Sender: FDA-Public Use
  Company Number: US-GENZYME-CERZ-1001292

PATIENT

DRUGS (1)
  1. CEREZYME [Suspect]
     Indication: GAUCHER'S DISEASE
     Dosage: 30 U/KG, Q2W
     Route: 042

REACTIONS (1)
  - GASTROINTESTINAL VIRAL INFECTION [None]
